FAERS Safety Report 20346046 (Version 1)
Quarter: 2022Q1

REPORT INFORMATION
  Report Type: Report from Study
  Country: CO (occurrence: CO)
  Receive Date: 20220118
  Receipt Date: 20220118
  Transmission Date: 20220423
  Serious: Yes (Death, Hospitalization)
  Sender: FDA-Public Use
  Company Number: CO-BAYER-2022A005734

PATIENT
  Age: 42 Year
  Sex: Male

DRUGS (1)
  1. ADEMPAS [Suspect]
     Active Substance: RIOCIGUAT
     Indication: Pulmonary hypertension
     Dosage: 2.5 MG, Q8HR
     Dates: start: 20170502, end: 20211221

REACTIONS (3)
  - Death [Fatal]
  - Endotracheal intubation [None]
  - Intensive care [None]

NARRATIVE: CASE EVENT DATE: 20211221
